FAERS Safety Report 15714593 (Version 3)
Quarter: 2019Q1

REPORT INFORMATION
  Report Type: Report from Study
  Country: JP (occurrence: JP)
  Receive Date: 20181212
  Receipt Date: 20190307
  Transmission Date: 20190417
  Serious: Yes (Other)
  Sender: FDA-Public Use
  Company Number: JP-TEVA-2018-JP-985373

PATIENT
  Age: 66 Year
  Sex: Female

DRUGS (8)
  1. RITUXIMAB. [Concomitant]
     Active Substance: RITUXIMAB
     Indication: DIFFUSE LARGE B-CELL LYMPHOMA
     Dosage: 375 MG/M2/DAY, CYCLIC (DAY1 OF EACH 21-DAY CYCLE)
     Route: 041
     Dates: start: 20181126
  2. TRIMETHOPRIM SULFAMETHOXAZOLE [Concomitant]
     Active Substance: SULFAMETHOXAZOLE\TRIMETHOPRIM
     Indication: INFECTION PROPHYLAXIS
     Dosage: 1 DOSAGE FORMS DAILY; 1 DF, ONCE DAILY (AFTER BREAKFAST AND STARTED BEFORE OBTAINING INFORMED CONSEN
     Route: 048
  3. BENDAMUSTINE HYDROCHLORIDE. [Suspect]
     Active Substance: BENDAMUSTINE HYDROCHLORIDE
     Indication: DIFFUSE LARGE B-CELL LYMPHOMA
     Dosage: 120 MG/M2/DAY, CYCLIC (DAY2 AND DAY3 OF EACH 21-DAY CYCLE)
     Route: 042
     Dates: start: 20181127, end: 20181128
  4. LANSOPRAZOLE. [Concomitant]
     Active Substance: LANSOPRAZOLE
     Indication: PROPHYLAXIS
     Dosage: 1 DOSAGE FORMS DAILY; 1 DF, ONCE DAILY (AFTER BREAKFAST AND STARTED BEFORE OBTAINING INFORMED CONSEN
     Route: 048
  5. METOCLOPRAMIDE. [Concomitant]
     Active Substance: METOCLOPRAMIDE
     Indication: NAUSEA
     Route: 041
     Dates: start: 20181128
  6. MAGNESIUM OXIDE. [Concomitant]
     Active Substance: MAGNESIUM OXIDE
     Indication: CONSTIPATION
     Dosage: 2 TABLETS X3/DAY (AFTER EVERY MEAL BEFORE OBTAINING INFROMED CONSENT)
     Route: 048
  7. FLUCONAZOLE. [Concomitant]
     Active Substance: FLUCONAZOLE
     Indication: INFECTION PROPHYLAXIS
     Dosage: 1 DOSAGE FORMS DAILY; 1 DF, ONCE DAILY (AFTER BREAKFAST AND STARTED BEFORE OBTAINING INFORMED CONSEN
     Route: 048
  8. ACICLOVIR [Concomitant]
     Active Substance: ACYCLOVIR
     Indication: INFECTION PROPHYLAXIS
     Dosage: 1 DOSAGE FORMS DAILY; 1 DF, ONCE DAILY (AFTER BREAKFAST AND STARTED BEFORE OBTAINING INFORMED CONSEN
     Route: 048

REACTIONS (1)
  - Intestinal perforation [Recovered/Resolved]

NARRATIVE: CASE EVENT DATE: 20181128
